FAERS Safety Report 16623026 (Version 2)
Quarter: 2019Q3

REPORT INFORMATION
  Report Type: Report from Study
  Country: ZA (occurrence: ZA)
  Receive Date: 20190723
  Receipt Date: 20190924
  Transmission Date: 20191004
  Serious: Yes (Congenital Anomaly)
  Sender: FDA-Public Use
  Company Number: ZA-VIIV HEALTHCARE LIMITED-ZA2019GSK132307

PATIENT
  Age: 6 Month
  Sex: Male
  Weight: 8.9 kg

DRUGS (11)
  1. VITAMIN C [Concomitant]
     Active Substance: ASCORBIC ACID
     Dosage: 100 MG, QD
     Dates: start: 20170726, end: 20171018
  2. DOLUTEGRAVIR [Suspect]
     Active Substance: DOLUTEGRAVIR
     Indication: HIV INFECTION
     Dosage: 50
     Route: 048
     Dates: start: 20180415
  3. EMTRICITABINE+TENOFOVIR ALAFENAMIDE [Suspect]
     Active Substance: EMTRICITABINE\TENOFOVIR ALAFENAMIDE FUMARATE
     Indication: HIV INFECTION
     Dosage: 25/200
     Route: 048
     Dates: start: 20180415
  4. FERROUS SULFATE. [Concomitant]
     Active Substance: FERROUS SULFATE
     Dosage: 200 MG, BID
     Dates: start: 20190125
  5. HYAN [Concomitant]
     Indication: CONTRACEPTION
     Dosage: 1 DF, QD
     Dates: start: 20190121
  6. FOLATE [Concomitant]
     Active Substance: FOLATE SODIUM
     Dosage: 5 MG, QD
     Dates: start: 20180706
  7. VITAMIN C [Concomitant]
     Active Substance: ASCORBIC ACID
     Dosage: 100 MG, QD
     Dates: start: 20180706
  8. VITAMIN C [Concomitant]
     Active Substance: ASCORBIC ACID
     Dosage: 2 DF, QD
     Dates: start: 20170419, end: 20170424
  9. FOLATE [Concomitant]
     Active Substance: FOLATE SODIUM
     Dosage: 5 MG, QD
     Dates: start: 20180404, end: 20180417
  10. FERROUS SULFATE. [Concomitant]
     Active Substance: FERROUS SULFATE
     Dosage: 2 DF, QD
     Route: 048
     Dates: start: 20170721, end: 20190125
  11. FERROUS SULFATE. [Concomitant]
     Active Substance: FERROUS SULFATE
     Dosage: 2 DF, QD
     Route: 048
     Dates: start: 20170531, end: 20170721

REACTIONS (1)
  - Congenital anomaly [Not Recovered/Not Resolved]

NARRATIVE: CASE EVENT DATE: 20190719
